FAERS Safety Report 15349699 (Version 4)
Quarter: 2018Q3

REPORT INFORMATION
  Report Type: Spontaneous
  Country: IT (occurrence: IT)
  Receive Date: 20180904
  Receipt Date: 20180925
  Transmission Date: 20181010
  Serious: Yes (Other)
  Sender: FDA-Public Use
  Company Number: IT-TAKEDA-2018TUS026333

PATIENT
  Age: 23 Year
  Sex: Male

DRUGS (9)
  1. COLINOX [Concomitant]
     Dosage: UNK
  2. MESAVANCOL [Concomitant]
     Active Substance: MESALAMINE
     Dosage: 1200 MG, UNK
  3. ASACOL [Concomitant]
     Active Substance: MESALAMINE
     Dosage: 1 G, UNK
     Route: 054
  4. VSL#3 [Concomitant]
     Active Substance: PROBIOTICS NOS
     Indication: PROBIOTIC THERAPY
     Dosage: UNK UNK, QD
  5. ENTYVIO [Suspect]
     Active Substance: VEDOLIZUMAB
     Dosage: 300 MG, Q4WEEKS
     Route: 042
     Dates: start: 201712
  6. DIBASE [Concomitant]
     Active Substance: CHOLECALCIFEROL
     Dosage: 25 MILLION IU, 1/WEEK
     Route: 048
  7. TOPSTER [Concomitant]
     Dosage: UNK
     Route: 054
  8. ENTYVIO [Suspect]
     Active Substance: VEDOLIZUMAB
     Indication: COLITIS ULCERATIVE
     Dosage: 300 MG, UNK
     Route: 042
     Dates: start: 20170801
  9. NORMIX [Concomitant]
     Active Substance: RIFAXIMIN
     Dosage: UNK UNK, QD
     Route: 048

REACTIONS (1)
  - Eosinophilia [Recovered/Resolved]

NARRATIVE: CASE EVENT DATE: 20180429
